FAERS Safety Report 4339590-6 (Version None)
Quarter: 2004Q1

REPORT INFORMATION
  Report Type: 
  Country: None (occurrence: None)
  Receive Date: 20040329
  Receipt Date: 20040220
  Transmission Date: 20041129
  Serious: No
  Sender: FDA-Public Use
  Company Number: 04P-163-0251042-00

PATIENT
  Age: 55 Year
  Sex: Female

DRUGS (16)
  1. HUMIRA [Suspect]
     Indication: RHEUMATOID ARTHRITIS
     Dosage: 40 MG, 1 IN 2 WK, SUBCUTANEOUS
     Route: 058
     Dates: start: 20040203
  2. LEFLUNOMIDE [Concomitant]
  3. CELECOXIB [Concomitant]
  4. PREDNISONE [Concomitant]
  5. METHOTREXATE [Concomitant]
  6. FEMHART [Concomitant]
  7. PROPRANOLOL [Concomitant]
  8. CO-DIOVAN [Concomitant]
  9. SERTRALINE HYDROCHLORIDE [Concomitant]
  10. AMITRIPTYLINE HCL [Concomitant]
  11. FOLIC ACID [Concomitant]
  12. HYDROCODONE APAP (VICODIN) [Concomitant]
  13. ESOMEPRAZOLE [Concomitant]
  14. CALCIUM [Concomitant]
  15. TOCOPHEROL CONCENTRATE CAP [Concomitant]
  16. PYRIDOXINE HYDROCHLORIDE [Concomitant]

REACTIONS (5)
  - APHONIA [None]
  - FEELING COLD [None]
  - HEADACHE [None]
  - NASAL CONGESTION [None]
  - PHARYNGOLARYNGEAL PAIN [None]
